FAERS Safety Report 10019205 (Version 2)
Quarter: 2014Q2

REPORT INFORMATION
  Report Type: Report from Study
  Country: JP (occurrence: JP)
  Receive Date: 20140318
  Receipt Date: 20140403
  Transmission Date: 20141212
  Serious: Yes (Hospitalization)
  Sender: FDA-Public Use
  Company Number: JP-ASTRAZENECA-2014SE18450

PATIENT
  Age: 24146 Day
  Sex: Male

DRUGS (7)
  1. AZD6140 [Suspect]
     Indication: CORONARY ARTERY DISEASE
     Route: 048
     Dates: start: 20120202, end: 20140309
  2. ARTIST [Concomitant]
     Indication: MYOCARDIAL INFARCTION
     Route: 048
  3. PRAVASTATIN NA [Concomitant]
     Indication: HYPERCHOLESTEROLAEMIA
     Route: 048
     Dates: start: 20120628
  4. ENALAPRIL [Concomitant]
     Indication: HYPERTENSION
     Route: 048
     Dates: start: 20130607
  5. LANSOPRAZOLE [Concomitant]
     Indication: GASTRITIS
     Route: 048
  6. ASA [Concomitant]
     Route: 048
     Dates: end: 20140309
  7. ASA [Concomitant]
     Route: 048
     Dates: start: 20140318

REACTIONS (1)
  - Lung neoplasm malignant [Not Recovered/Not Resolved]
